FAERS Safety Report 23294021 (Version 1)
Quarter: 2023Q4

REPORT INFORMATION
  Report Type: Other
  Country: JP (occurrence: JP)
  Receive Date: 20231213
  Receipt Date: 20231213
  Transmission Date: 20240109
  Serious: Yes (Hospitalization)
  Sender: FDA-Public Use
  Company Number: JP-Merck Healthcare KGaA-2023492547

PATIENT
  Age: 8 Decade
  Sex: Male

DRUGS (2)
  1. BAVENCIO [Suspect]
     Active Substance: AVELUMAB
     Indication: Renal cancer recurrent
     Route: 041
  2. INLYTA [Suspect]
     Active Substance: AXITINIB
     Indication: Renal cancer recurrent

REACTIONS (5)
  - COVID-19 [Recovering/Resolving]
  - Sepsis [Recovering/Resolving]
  - Multiple organ dysfunction syndrome [Unknown]
  - Adrenal insufficiency [Recovering/Resolving]
  - Myositis [Recovering/Resolving]
